FAERS Safety Report 6497771-X (Version None)
Quarter: 2009Q4

REPORT INFORMATION
  Report Type: 
  Country: None (occurrence: None)
  Receive Date: 20091211
  Receipt Date: 20090803
  Transmission Date: 20100525
  Serious: Yes (Other)
  Sender: FDA-Public Use
  Company Number: 1000010656

PATIENT
  Sex: Male

DRUGS (2)
  1. ESCITALOPRAM [Suspect]
  2. NOCERTONE [Suspect]
     Indication: MIGRAINE

REACTIONS (2)
  - DRUG INTERACTION [None]
  - SEROTONIN SYNDROME [None]
